FAERS Safety Report 17756701 (Version 2)
Quarter: 2020Q4

REPORT INFORMATION
  Report Type: Spontaneous
  Country: CA (occurrence: CA)
  Receive Date: 20200507
  Receipt Date: 20201007
  Transmission Date: 20210113
  Serious: Yes (Hospitalization)
  Sender: FDA-Public Use
  Company Number: CA-SAMSUNG BIOEPIS-SB-2020-15192

PATIENT
  Age: 64 Year
  Sex: Male

DRUGS (2)
  1. DESOXIMETASONE. [Concomitant]
     Active Substance: DESOXIMETASONE
     Indication: PRODUCT USED FOR UNKNOWN INDICATION
     Dosage: UNKNOWN
     Route: 065
  2. INFLIXIMAB [Suspect]
     Active Substance: INFLIXIMAB
     Indication: RHEUMATOID ARTHRITIS
     Route: 042

REACTIONS (9)
  - Blood pressure increased [Recovered/Resolved]
  - Adhesion [Recovered/Resolved]
  - Off label use [Recovered/Resolved]
  - Body temperature decreased [Recovered/Resolved]
  - Musculoskeletal pain [Recovered/Resolved]
  - Influenza like illness [Recovered/Resolved]
  - Body temperature fluctuation [Recovered/Resolved]
  - Red blood cell sedimentation rate increased [Recovered/Resolved]
  - Product use issue [Recovered/Resolved]
